FAERS Safety Report 4615947-0 (Version None)
Quarter: 2005Q1

REPORT INFORMATION
  Report Type: 
  Country: None (occurrence: None)
  Receive Date: 20050318
  Receipt Date: 20050304
  Transmission Date: 20050727
  Serious: Yes (Hospitalization)
  Sender: FDA-Public Use
  Company Number: DSA_26033_2005

PATIENT
  Age: 83 Year
  Sex: Female

DRUGS (7)
  1. MON-TILDIEM                          SLOW RELEASE [Suspect]
     Dosage: 200 MG Q DAY PO
     Route: 048
     Dates: start: 20041219, end: 20041229
  2. DAFLON [Concomitant]
  3. HEXAQUINE [Concomitant]
  4. MODOPAR [Concomitant]
  5. TRIVASTAL [Concomitant]
  6. BEFIZAL [Concomitant]
  7. DOLIPRANE [Concomitant]

REACTIONS (6)
  - ACUTE GENERALISED EXANTHEMATOUS PUSTULOSIS [None]
  - C-REACTIVE PROTEIN INCREASED [None]
  - CHEILITIS [None]
  - LEUKOCYTOSIS [None]
  - PRURITUS [None]
  - SKIN EXFOLIATION [None]
